FAERS Safety Report 19246126 (Version 2)
Quarter: 2021Q3

REPORT INFORMATION
  Report Type: Spontaneous
  Country: US (occurrence: US)
  Receive Date: 20210512
  Receipt Date: 20210706
  Transmission Date: 20211014
  Serious: Yes (Other)
  Sender: FDA-Public Use
  Company Number: US-BAYER-2021-139725

PATIENT
  Age: 35 Year
  Sex: Female
  Weight: 61.68 kg

DRUGS (1)
  1. KYLEENA [Suspect]
     Active Substance: LEVONORGESTREL
     Indication: CONTRACEPTION
     Dosage: 17.5 ?G PER DAY CONTINUOUSLY
     Route: 015
     Dates: start: 20210222, end: 20210430

REACTIONS (12)
  - Oesophageal obstruction [Recovered/Resolved]
  - Genital haemorrhage [Recovered/Resolved]
  - Dysmenorrhoea [Recovered/Resolved]
  - Peripheral swelling [Recovered/Resolved]
  - Anaphylactic reaction [Recovered/Resolved]
  - Device expulsion [Recovered/Resolved]
  - Contraindicated device used [None]
  - Drug intolerance [None]
  - Abdominal pain lower [Recovered/Resolved]
  - Medical device monitoring error [None]
  - Vaginal haemorrhage [Recovered/Resolved]
  - Rash erythematous [Recovered/Resolved]

NARRATIVE: CASE EVENT DATE: 202102
